FAERS Safety Report 10427672 (Version 1)
Quarter: 2014Q3

REPORT INFORMATION
  Report Type: Spontaneous
  Country: JP (occurrence: JP)
  Receive Date: 20140903
  Receipt Date: 20140903
  Transmission Date: 20150326
  Serious: Yes (Other)
  Sender: FDA-Public Use
  Company Number: PHHY2014JP110033

PATIENT
  Age: 59 Year
  Sex: Female

DRUGS (10)
  1. ZOMETA [Suspect]
     Active Substance: ZOLEDRONIC ACID
     Indication: BREAST CANCER METASTATIC
     Dosage: UNK UKN, UNK
     Dates: start: 200704, end: 200707
  2. CYCLOPHOSPHAMIDE. [Concomitant]
     Active Substance: CYCLOPHOSPHAMIDE
     Dosage: UNK UKN, UNK
     Dates: start: 200703
  3. DOXIFLURIDINE [Concomitant]
     Active Substance: DOXIFLURIDINE
     Dosage: UNK UKN, UNK
     Dates: start: 200707, end: 200708
  4. CISPLATIN. [Concomitant]
     Active Substance: CISPLATIN
     Dosage: UNK UKN, UNK
     Dates: start: 200708
  5. ZOMETA [Suspect]
     Active Substance: ZOLEDRONIC ACID
     Dosage: UNK UKN, UNK
     Dates: start: 201010, end: 201012
  6. DOXORUBICIN [Concomitant]
     Active Substance: DOXORUBICIN
     Dosage: UNK UKN, UNK
     Dates: start: 200708
  7. CYCLOPHOSPHAMIDE. [Concomitant]
     Active Substance: CYCLOPHOSPHAMIDE
     Dosage: UNK
     Dates: start: 200708
  8. DEXAMETHASONE. [Concomitant]
     Active Substance: DEXAMETHASONE
     Dosage: UNK UKN, UNK
     Dates: start: 200707, end: 200708
  9. ZOMETA [Suspect]
     Active Substance: ZOLEDRONIC ACID
     Dosage: UNK UKN, UNK
     Dates: start: 200804
  10. EPIRUBICIN [Concomitant]
     Active Substance: EPIRUBICIN
     Dosage: UNK UKN, UNK
     Dates: start: 200703

REACTIONS (5)
  - Osteonecrosis of jaw [Unknown]
  - Bone erosion [Unknown]
  - Face oedema [Unknown]
  - Gingival erosion [Unknown]
  - Abscess jaw [Unknown]

NARRATIVE: CASE EVENT DATE: 200804
